FAERS Safety Report 14414958 (Version 1)
Quarter: 2018Q1

REPORT INFORMATION
  Report Type: Spontaneous
  Country: US (occurrence: US)
  Receive Date: 20180112
  Receipt Date: 20180112
  Transmission Date: 20180509
  Serious: Yes (Hospitalization)
  Sender: FDA-Public Use
  Company Number: None

PATIENT
  Age: 8 Year
  Sex: Female
  Weight: 42.2 kg

DRUGS (5)
  1. ERWINIA ASPARAGINASE [Suspect]
     Active Substance: ASPARAGINASE ERWINIA CHRYSANTHEMI
     Dates: end: 20171221
  2. VINCRISTINE SULFATE. [Suspect]
     Active Substance: VINCRISTINE SULFATE
     Dates: end: 20171218
  3. CYTARABINE. [Suspect]
     Active Substance: CYTARABINE
     Dates: end: 20171220
  4. DEXAMETHASONE. [Suspect]
     Active Substance: DEXAMETHASONE
     Dates: end: 20171222
  5. METHOTREXATE. [Suspect]
     Active Substance: METHOTREXATE
     Dates: end: 20171218

REACTIONS (6)
  - Pyrexia [None]
  - Blood potassium decreased [None]
  - Malaise [None]
  - Neutrophil count decreased [None]
  - Oropharyngeal pain [None]
  - Haemoglobin decreased [None]

NARRATIVE: CASE EVENT DATE: 20171225
